FAERS Safety Report 18203226 (Version 1)
Quarter: 2020Q3

REPORT INFORMATION
  Report Type: Spontaneous
  Country: US (occurrence: US)
  Receive Date: 20200827
  Receipt Date: 20200827
  Transmission Date: 20201103
  Serious: Yes (Other)
  Sender: FDA-Public Use
  Company Number: US-BIOGEN-2020BI00915727

PATIENT
  Sex: Female

DRUGS (1)
  1. TECFIDERA [Suspect]
     Active Substance: DIMETHYL FUMARATE
     Indication: MULTIPLE SCLEROSIS
     Route: 065

REACTIONS (8)
  - Swelling [Unknown]
  - Complex regional pain syndrome [Unknown]
  - Dizziness [Unknown]
  - Seizure [Unknown]
  - Fall [Recovered/Resolved]
  - Facial paralysis [Unknown]
  - Flushing [Unknown]
  - Burning sensation [Unknown]
